FAERS Safety Report 8188497-5 (Version None)
Quarter: 2012Q1

REPORT INFORMATION
  Report Type: 
  Country: None (occurrence: None)
  Receive Date: 20120306
  Receipt Date: 20120229
  Transmission Date: 20120608
  Serious: Yes (Other)
  Sender: FDA-Public Use
  Company Number: PHEH2012US004224

PATIENT
  Sex: Female

DRUGS (16)
  1. DICYCLOMINE [Concomitant]
     Dosage: UNK
  2. DIOVAN [Suspect]
     Dosage: 2 DF (160 MG), PER DAY
  3. LYRICA [Concomitant]
     Dosage: UNK
  4. NORVASC [Concomitant]
     Dosage: UNK UKN, UNK
  5. CHLORTHALIDONE [Concomitant]
     Dosage: UNK
  6. TRAMADOL HCL [Concomitant]
  7. TETRACYCLINE [Concomitant]
     Dosage: UNK
  8. METFORMIN HCL [Concomitant]
     Dosage: UNK
  9. GABAPENTIN [Concomitant]
     Dosage: UNK
  10. CLONIDINE [Concomitant]
     Dosage: UNK
  11. ACETYLSALICYLIC ACID SRT [Concomitant]
     Dosage: 81 MG, UNK
  12. ALPRAZOLAM [Concomitant]
     Dosage: UNK
  13. ZANTAC [Concomitant]
     Dosage: UNK
  14. METOPROLOL SUCCINATE [Concomitant]
     Dosage: UNK
  15. AMITRIPTYLINE HCL [Concomitant]
     Dosage: UNK
  16. AMLODIPINE [Concomitant]
     Dosage: UNK

REACTIONS (4)
  - NEUROPATHY PERIPHERAL [None]
  - PAIN [None]
  - DIABETES MELLITUS [None]
  - HYPERTENSION [None]
